FAERS Safety Report 4359167-6 (Version None)
Quarter: 2004Q2

REPORT INFORMATION
  Report Type: 
  Country: None (occurrence: None)
  Receive Date: 20040517
  Receipt Date: 20040517
  Transmission Date: 20050107
  Serious: Yes (Hospitalization)
  Sender: FDA-Public Use
  Company Number: None

PATIENT
  Age: 55 Year
  Sex: Male

DRUGS (12)
  1. AMIODARONE HCL [Suspect]
     Indication: CARDIAC FAILURE CONGESTIVE
     Dosage: 200 MG QD
     Dates: start: 20031104
  2. METOPROLOL SA [Suspect]
     Indication: CARDIAC FAILURE CONGESTIVE
     Dosage: 50 MG QD
     Dates: start: 20031104
  3. DIGOXIN [Suspect]
     Indication: CARDIAC FAILURE CONGESTIVE
     Dosage: 0.25 MG QD
     Dates: start: 20031104
  4. RANITIDINE [Concomitant]
  5. FOSINOPRIL SODIUM [Concomitant]
  6. FUROSEMIDE [Concomitant]
  7. MAGNOSIUM OXIDE [Concomitant]
  8. SULINDAC [Concomitant]
  9. GLYBURIDE [Concomitant]
  10. ATORVASTATIN CALCIUM [Concomitant]
  11. METFORMIN HCL [Concomitant]
  12. AVANDIA [Concomitant]

REACTIONS (2)
  - BRADYCARDIA [None]
  - HYPERKALAEMIA [None]
